FAERS Safety Report 5873269-4 (Version None)
Quarter: 2008Q3

REPORT INFORMATION
  Report Type: 
  Country: None (occurrence: None)
  Receive Date: 20080829
  Receipt Date: 20080814
  Transmission Date: 20090109
  Serious: Yes (Hospitalization)
  Sender: FDA-Public Use
  Company Number: 20080239  /

PATIENT
  Age: 80 Year
  Sex: Female

DRUGS (7)
  1. VENOFER [Suspect]
     Indication: IRON DEFICIENCY ANAEMIA
     Dosage: 200 MG INTRAVENOUS
     Route: 042
     Dates: start: 20080516
  2. AMLOR (AMLODIPPINE) [Concomitant]
  3. IRBESARTAN [Concomitant]
  4. CALCIDOSE VITAMIN D (CHOLECALCIFEROL) [Concomitant]
  5. ARANESP (DARBEPOETIN ALPHA) [Concomitant]
  6. KAYEXALATE (SODIUM POLYSTRENE) [Concomitant]
  7. LASIX [Concomitant]

REACTIONS (3)
  - INJECTION SITE ERYTHEMA [None]
  - LYMPHANGITIS [None]
  - PYREXIA [None]
